FAERS Safety Report 7282039-4 (Version None)
Quarter: 2011Q1

REPORT INFORMATION
  Report Type: 
  Country: None (occurrence: None)
  Receive Date: 20110208
  Receipt Date: 20110120
  Transmission Date: 20110831
  Serious: Yes (Death, Congenital Anomaly)
  Sender: FDA-Public Use
  Company Number: GXKR2011DK00658

PATIENT
  Sex: Female

DRUGS (2)
  1. SERTRALINE HYDROCHLORIDE [Concomitant]
     Indication: DEPRESSION
     Dates: start: 20100813
  2. MIRTAZAPIN HEXAL [Suspect]
     Dosage: UNK
     Route: 064
     Dates: start: 20100712, end: 20100802

REACTIONS (4)
  - CRANIOFACIAL DYSOSTOSIS [None]
  - VENTRICULAR SEPTAL DEFECT [None]
  - DRUG EXPOSURE DURING PREGNANCY [None]
  - FOETAL DAMAGE [None]
